FAERS Safety Report 20027067 (Version 1)
Quarter: 2021Q4

REPORT INFORMATION
  Report Type: Spontaneous
  Country: GB (occurrence: GB)
  Receive Date: 20211103
  Receipt Date: 20211103
  Transmission Date: 20220303
  Serious: Yes (Hospitalization, Other)
  Sender: FDA-Public Use
  Company Number: GB-ABBVIE-21K-167-4145704-00

PATIENT
  Age: 13 Year
  Weight: 38.2 kg

DRUGS (4)
  1. EPILIM [Suspect]
     Active Substance: VALPROATE SODIUM
     Indication: Epilepsy
     Route: 048
     Dates: start: 20090521
  2. CLOBAZAM [Concomitant]
     Active Substance: CLOBAZAM
     Indication: Product used for unknown indication
     Route: 065
     Dates: start: 201706
  3. LEVETIRACETAM [Concomitant]
     Active Substance: LEVETIRACETAM
     Indication: Product used for unknown indication
     Route: 065
     Dates: start: 201106
  4. PHENYTOIN [Concomitant]
     Active Substance: PHENYTOIN
     Indication: Product used for unknown indication
     Route: 065
     Dates: start: 201706

REACTIONS (5)
  - Lower respiratory tract infection [Unknown]
  - Blood test abnormal [Unknown]
  - Anaemia [Recovered/Resolved]
  - Illness [Unknown]
  - Seizure [Not Recovered/Not Resolved]

NARRATIVE: CASE EVENT DATE: 20190930
